FAERS Safety Report 5907378-8 (Version None)
Quarter: 2008Q4

REPORT INFORMATION
  Report Type: 
  Country: None (occurrence: None)
  Receive Date: 20081003
  Receipt Date: 20080930
  Transmission Date: 20090506
  Serious: Yes (Other)
  Sender: FDA-Public Use
  Company Number: GB-JNJFOC-20080905702

PATIENT
  Age: 3 Decade
  Sex: Male

DRUGS (2)
  1. NIZORAL [Suspect]
     Indication: DRUG USE FOR UNKNOWN INDICATION
     Route: 061
  2. STEROID [Concomitant]
     Route: 061

REACTIONS (3)
  - BURNING SENSATION [None]
  - SKIN EXFOLIATION [None]
  - YELLOW SKIN [None]
